FAERS Safety Report 16260695 (Version 2)
Quarter: 2019Q2

REPORT INFORMATION
  Report Type: Spontaneous
  Country: US (occurrence: US)
  Receive Date: 20190501
  Receipt Date: 20190507
  Transmission Date: 20190711
  Serious: Yes (Life-Threatening, Other)
  Sender: FDA-Public Use
  Company Number: US-PFIZER INC-2019182137

PATIENT
  Age: 63 Year
  Sex: Female

DRUGS (1)
  1. NOREPINEPHRINE BITARTRATE. [Suspect]
     Active Substance: NOREPINEPHRINE BITARTRATE
     Indication: THERAPEUTIC PROCEDURE
     Dosage: UNK (10 MCG/KG/MIN (700 MCG/MIN))

REACTIONS (3)
  - Accidental overdose [Recovered/Resolved]
  - Stress cardiomyopathy [Recovered/Resolved]
  - Atrial flutter [Recovered/Resolved]
